FAERS Safety Report 24148929 (Version 1)
Quarter: 2024Q3

REPORT INFORMATION
  Report Type: Spontaneous
  Country: FR (occurrence: FR)
  Receive Date: 20240729
  Receipt Date: 20240729
  Transmission Date: 20241017
  Serious: Yes (Death, Other)
  Sender: MERCK
  Company Number: FR-MERCK-0707FRA00035

PATIENT
  Age: 36 Year
  Sex: Female

DRUGS (9)
  1. EMEND [Interacting]
     Active Substance: APREPITANT
     Indication: Prophylaxis of nausea and vomiting
     Dosage: 125 MG, QD
     Route: 048
     Dates: start: 20061116, end: 20061116
  2. EMEND [Interacting]
     Active Substance: APREPITANT
     Dosage: 80 MG, BID
     Route: 048
     Dates: start: 20061117, end: 20061118
  3. EMEND [Interacting]
     Active Substance: APREPITANT
     Dosage: 125 MG, QD
     Route: 048
     Dates: start: 20070116, end: 20070116
  4. EMEND [Interacting]
     Active Substance: APREPITANT
     Dosage: 80 MG, QD
     Route: 048
     Dates: start: 20070117, end: 20070118
  5. EMEND [Interacting]
     Active Substance: APREPITANT
     Dosage: 125 MG, QD
     Route: 048
     Dates: start: 20070207, end: 20070207
  6. EMEND [Interacting]
     Active Substance: APREPITANT
     Dosage: 80 MG, BID
     Route: 048
     Dates: start: 20070208, end: 20070209
  7. PEGFILGRASTIM [Interacting]
     Active Substance: PEGFILGRASTIM
     Indication: Prophylaxis
     Dosage: 6 MG, UNK
     Route: 058
     Dates: start: 20061029, end: 20070209
  8. DOXORUBICIN HYDROCHLORIDE [Suspect]
     Active Substance: DOXORUBICIN HYDROCHLORIDE
     Indication: Liposarcoma
     Dosage: 60 MILLIGRAM/SQ. METER, QD
     Route: 042
     Dates: start: 20061025, end: 20070205
  9. IFOSFAMIDE [Suspect]
     Active Substance: IFOSFAMIDE
     Indication: Liposarcoma
     Dosage: 4680 MG, TID
     Route: 042
     Dates: start: 20061025, end: 20070205

REACTIONS (3)
  - Sudden death [Fatal]
  - Drug ineffective [Recovered/Resolved]
  - Drug interaction [Recovered/Resolved]

NARRATIVE: CASE EVENT DATE: 20070124
